FAERS Safety Report 6867529-8 (Version None)
Quarter: 2010Q3

REPORT INFORMATION
  Report Type: 
  Country: None (occurrence: None)
  Receive Date: 20100722
  Receipt Date: 20100722
  Transmission Date: 20110219
  Serious: Yes (Other)
  Sender: FDA-Public Use
  Company Number: None

PATIENT
  Age: 83 Year
  Sex: Female

DRUGS (6)
  1. GLUCOSE OXIDASE + LACTOPEROXIDASE + LYSOZYME MOUTHWASH (GLUCOSEOX+LACT [Suspect]
     Indication: DRY MOUTH
     Dosage: UNK/ PER DAY / ORAL
     Route: 048
     Dates: start: 20091201, end: 20100115
  2. GLUCOSE OXIDASE + LACTOPEROXIDASE + LYSOZYME MOUTHWASH (GLUCOSEOX+LACT [Suspect]
  3. LOSARTAN POTASSIUM [Concomitant]
  4. ETODOLAC [Concomitant]
  5. RISEDRONIC ACID [Concomitant]
  6. OMEPRAZOLE [Concomitant]

REACTIONS (3)
  - ABDOMINAL PAIN UPPER [None]
  - DIARRHOEA [None]
  - HAEMATOCHEZIA [None]
